FAERS Safety Report 5240162-X (Version None)
Quarter: 2007Q1

REPORT INFORMATION
  Report Type: 
  Country: None (occurrence: None)
  Receive Date: 20070216
  Receipt Date: 20070201
  Transmission Date: 20070707
  Serious: Yes (Hospitalization)
  Sender: FDA-Public Use
  Company Number: JP-PFIZER INC-2007011583

PATIENT
  Sex: Female
  Weight: 57 kg

DRUGS (12)
  1. CAMPTOSAR [Suspect]
     Indication: LUNG NEOPLASM MALIGNANT
     Route: 042
     Dates: start: 20061123, end: 20061207
  2. CAMPTOSAR [Suspect]
     Route: 042
     Dates: start: 20061222, end: 20070105
  3. TEGAFUR/GIMERACIL/OTERACIL POTASSIUM [Suspect]
     Indication: LUNG NEOPLASM MALIGNANT
     Route: 048
     Dates: start: 20061123, end: 20061206
  4. TEGAFUR/GIMERACIL/OTERACIL POTASSIUM [Suspect]
     Route: 048
     Dates: start: 20061222, end: 20070104
  5. BASEN [Suspect]
     Indication: DIABETES MELLITUS
     Route: 048
  6. EUGLUCON [Concomitant]
     Indication: DIABETES MELLITUS
     Route: 048
  7. CETAPRIL [Concomitant]
     Indication: HYPERTENSION
     Route: 048
     Dates: start: 20010101
  8. CONIEL [Concomitant]
     Indication: HYPERTENSION
     Route: 048
     Dates: start: 20010101
  9. BLOPRESS [Concomitant]
     Indication: HYPERTENSION
     Route: 048
     Dates: start: 20020401
  10. RIZE [Concomitant]
     Indication: ANXIETY
     Route: 048
     Dates: start: 20020401
  11. PRIMPERAN [Concomitant]
     Indication: NAUSEA
     Route: 048
     Dates: start: 20061124
  12. HANGE-SHASHIN-TO [Concomitant]
     Indication: DIARRHOEA
     Route: 048
     Dates: start: 20061204

REACTIONS (1)
  - PNEUMATOSIS INTESTINALIS [None]
